FAERS Safety Report 24238918 (Version 1)
Quarter: 2024Q3

REPORT INFORMATION
  Report Type: Spontaneous
  Country: US (occurrence: None)
  Receive Date: 20240821
  Receipt Date: 20240821
  Transmission Date: 20241017
  Serious: Yes (Life-Threatening, Disabling, Other)
  Sender: Public
  Company Number: None

PATIENT
  Age: 39 Year
  Sex: Female
  Weight: 82.8 kg

DRUGS (1)
  1. SEMAGLUTIDE [Suspect]
     Active Substance: SEMAGLUTIDE
     Indication: Weight decreased
     Dosage: 1 INJECTION ?
     Dates: start: 20240628, end: 20240628

REACTIONS (6)
  - Blood glucose decreased [None]
  - Gastritis [None]
  - Oesophagitis [None]
  - Colitis [None]
  - Pain [None]
  - Disability [None]

NARRATIVE: CASE EVENT DATE: 20240628
